FAERS Safety Report 5945868-2 (Version None)
Quarter: 2008Q4

REPORT INFORMATION
  Report Type: 
  Country: None (occurrence: None)
  Receive Date: 20081110
  Receipt Date: 20081030
  Transmission Date: 20090506
  Serious: Yes (Other)
  Sender: FDA-Public Use
  Company Number: US-JNJFOC-20080803250

PATIENT
  Sex: Female
  Weight: 104.9 kg

DRUGS (9)
  1. DOXIL [Suspect]
     Dosage: 4TH DOSE
     Route: 042
  2. DOXIL [Suspect]
     Route: 042
  3. DOXIL [Suspect]
     Route: 042
  4. DOXIL [Suspect]
     Indication: UTERINE CANCER
     Dosage: 1ST 3 DOSES
     Route: 042
  5. METOPROLOL TARTRATE [Concomitant]
     Indication: HYPERTENSION
     Route: 065
  6. LASIX [Concomitant]
     Indication: DIURETIC THERAPY
     Route: 065
  7. POTASSIUM CHLORIDE [Concomitant]
     Route: 065
  8. STOOL SOFTNER [Concomitant]
     Route: 065
  9. MULTI-VITAMIN [Concomitant]
     Route: 065

REACTIONS (1)
  - PALMAR-PLANTAR ERYTHRODYSAESTHESIA SYNDROME [None]
